FAERS Safety Report 8850549 (Version 3)
Quarter: 2013Q3

REPORT INFORMATION
  Report Type: Spontaneous
  Country: DK (occurrence: DK)
  Receive Date: 20121019
  Receipt Date: 20130718
  Transmission Date: 20140515
  Serious: Yes (Hospitalization)
  Sender: FDA-Public Use
  Company Number: DK-B.I. PHARMACEUTICALS,INC./RIDGEFIELD-2012-SW-00781DB

PATIENT
  Age: 82 Year
  Sex: Female

DRUGS (12)
  1. PRADAXA [Suspect]
     Indication: ATRIAL FIBRILLATION
     Dosage: 220 MG
     Route: 048
     Dates: start: 201111, end: 20120915
  2. METOPROLOLSUCCINAT [Concomitant]
     Indication: ATRIAL FIBRILLATION
  3. SYMBICORT TURBOHALER [Concomitant]
     Indication: CHRONIC OBSTRUCTIVE PULMONARY DISEASE
  4. PANTOLOC [Concomitant]
  5. ZOLPIDEM ^ACTAVIS^ [Concomitant]
  6. MAREVAN [Concomitant]
     Indication: ANTICOAGULANT THERAPY
     Dates: start: 20120926
  7. DIGOXIN [Concomitant]
     Indication: ATRIAL FIBRILLATION
     Dates: start: 20120926
  8. PINEX RETARD [Concomitant]
     Indication: BACK PAIN
     Dates: start: 20120927
  9. CENTYL MITE MED KALIUMKLORID [Concomitant]
     Indication: HYPERTENSION
     Dates: start: 20121001
  10. ANCOZAN [Concomitant]
     Indication: HYPERTENSION
     Dates: start: 20120925
  11. KALEORID [Concomitant]
     Indication: HYPOKALAEMIA
     Dates: start: 20120926, end: 20121006
  12. MABLET [Concomitant]
     Indication: HYPOMAGNESAEMIA
     Dates: start: 20120926, end: 20121006

REACTIONS (5)
  - Nausea [Recovered/Resolved]
  - Vomiting [Recovered/Resolved]
  - Asthenia [Unknown]
  - Dizziness [Unknown]
  - Disability [Unknown]
